FAERS Safety Report 19281396 (Version 1)
Quarter: 2021Q2

REPORT INFORMATION
  Report Type: Report from Study
  Country: NL (occurrence: NL)
  Receive Date: 20210520
  Receipt Date: 20210520
  Transmission Date: 20210717
  Serious: Yes (Hospitalization)
  Sender: FDA-Public Use
  Company Number: NL-GLAXOSMITHKLINE-NL2020GSK214950

PATIENT
  Age: 69 Year
  Sex: Female

DRUGS (12)
  1. DEXAMETHASONE. [Concomitant]
     Active Substance: DEXAMETHASONE
     Indication: PROPHYLAXIS
     Dosage: 8 MG, Z (ONCE DAILY ON D1, 2 AND 3 OF EVERY CHEMOTHERAPY CYCLE)
     Route: 048
     Dates: start: 20201008
  2. DOSTARLIMAB [Suspect]
     Active Substance: DOSTARLIMAB
     Indication: ENDOMETRIAL CANCER
     Dosage: 500 MG
     Dates: start: 20201008, end: 20201008
  3. AMITRYPTYLINE (AMITRIPTYLINI HYDROCHLORIDUM) [Concomitant]
     Indication: NEURALGIA
     Dosage: 25 MG, QD
     Route: 048
     Dates: start: 20201022
  4. AMLODIPINE [Concomitant]
     Active Substance: AMLODIPINE BESYLATE
     Indication: HYPERTENSION
     Dosage: 5 MG, QD
     Route: 048
     Dates: start: 20201005
  5. METOCLOPRAMIDE. [Concomitant]
     Active Substance: METOCLOPRAMIDE
     Indication: PROPHYLAXIS OF NAUSEA AND VOMITING
     Dosage: 10 MG, Z (OTHER?AS NEEDED WITH MAXIMUM OF THREEE TIMES A DAILY)
     Route: 048
     Dates: start: 20200929
  6. GRANISTERON [Concomitant]
     Active Substance: GRANISETRON
     Indication: PROPHYLAXIS
     Dosage: 2 MG, Z (ONCE DAILY ON EVERY D1 OF EVERY CHEMOTHERAPY CYCLE)
     Route: 048
     Dates: start: 20201008
  7. TEMAZEPAM. [Concomitant]
     Active Substance: TEMAZEPAM
     Indication: INSOMNIA
     Dosage: 10 MG, PRN
     Route: 048
     Dates: start: 20201017, end: 20201028
  8. CARBOPLATIN (NON?GSK COMPARATOR) [Suspect]
     Active Substance: CARBOPLATIN
     Indication: ENDOMETRIAL CANCER
     Dosage: 5 AUC (550 MG)
     Route: 042
     Dates: start: 20201008, end: 20201008
  9. PACLITAXEL. [Suspect]
     Active Substance: PACLITAXEL
     Indication: ENDOMETRIAL CANCER
     Dosage: 175 MG/M2
     Route: 042
     Dates: start: 20201008, end: 20201008
  10. MIRTAZAPINE. [Concomitant]
     Active Substance: MIRTAZAPINE
     Indication: INSOMNIA
     Dosage: 15 MG, QD
     Route: 048
     Dates: start: 20201028, end: 20201028
  11. CLEMASTIN [Concomitant]
     Active Substance: CLEMASTINE
     Indication: PROPHYLAXIS
     Dosage: 2 MG, Z (ONCE DAILY ON D1 OF EVERY CHEMOTHERAPY CYCLE)
     Route: 048
     Dates: start: 20201008
  12. OXYCODONE [Concomitant]
     Active Substance: OXYCODONE
     Indication: NEURALGIA
     Dosage: 5 MG, Z (AS NEEDED WITH MAXIMUM OF 6 TIMES A DAILY)
     Route: 048
     Dates: start: 20201022, end: 20201030

REACTIONS (1)
  - Acute kidney injury [Not Recovered/Not Resolved]

NARRATIVE: CASE EVENT DATE: 20201028
